FAERS Safety Report 7369240-6 (Version None)
Quarter: 2011Q1

REPORT INFORMATION
  Report Type: 
  Country: None (occurrence: None)
  Receive Date: 20110323
  Receipt Date: 20110318
  Transmission Date: 20110831
  Serious: Yes (Hospitalization)
  Sender: FDA-Public Use
  Company Number: FR-ROCHE-766154

PATIENT
  Sex: Female

DRUGS (7)
  1. ROCEPHIN [Suspect]
     Route: 048
     Dates: start: 20110125, end: 20110208
  2. DALACINE [Suspect]
     Route: 048
     Dates: start: 20110201, end: 20110211
  3. ERYTHROMYCINE [Suspect]
     Route: 048
     Dates: start: 20110129, end: 20110212
  4. TAMIFLU [Concomitant]
     Route: 048
     Dates: start: 20110129, end: 20110201
  5. ZYVOX [Suspect]
     Route: 048
     Dates: start: 20110203, end: 20110210
  6. ACYCLOVIR [Concomitant]
     Route: 048
     Dates: start: 20110125, end: 20110127
  7. BACTRIM [Suspect]
     Route: 042
     Dates: start: 20110129, end: 20110214

REACTIONS (2)
  - POLYURIA [None]
  - THROMBOCYTOPENIA [None]
